FAERS Safety Report 6909178-9 (Version None)
Quarter: 2010Q3

REPORT INFORMATION
  Report Type: 
  Country: None (occurrence: None)
  Receive Date: 20100805
  Receipt Date: 20091203
  Transmission Date: 20110219
  Serious: No
  Sender: FDA-Public Use
  Company Number: US-TYCO HEALTHCARE/MALLINCKRODT-T200902267

PATIENT

DRUGS (4)
  1. MORPHINE [Suspect]
     Indication: PAIN
     Dosage: 30 MG Q 12 HOURS
  2. ACETAMINOPHEN AND HYDROCODONE BITARTRATE [Concomitant]
     Indication: BREAKTHROUGH PAIN
     Dosage: UNK, PRN
     Route: 048
  3. VALIUM [Concomitant]
     Indication: MUSCLE RELAXANT THERAPY
     Dosage: 10 MG, Q 8 HRS
  4. AMBIEN [Concomitant]
     Indication: SLEEP DISORDER
     Dosage: 10 MG, Q HS

REACTIONS (4)
  - ASTHENIA [None]
  - CONFUSIONAL STATE [None]
  - HEADACHE [None]
  - MALAISE [None]
